FAERS Safety Report 5961173-2 (Version None)
Quarter: 2008Q4

REPORT INFORMATION
  Report Type: 
  Country: None (occurrence: None)
  Receive Date: 20081121
  Receipt Date: 20081113
  Transmission Date: 20090506
  Serious: Yes (Hospitalization)
  Sender: FDA-Public Use
  Company Number: US-BIOGENIDEC-2008BI027634

PATIENT
  Age: 63 Year
  Sex: Female
  Weight: 64 kg

DRUGS (17)
  1. AVONEX [Suspect]
     Indication: MULTIPLE SCLEROSIS
     Route: 030
     Dates: start: 20051007, end: 20071101
  2. AVONEX [Suspect]
     Route: 030
     Dates: start: 20081031
  3. ATENOLOL [Concomitant]
     Indication: HYPERTENSION
  4. HYDROCHLOROTHIAZIDE [Concomitant]
     Indication: HYPERTENSION
  5. TEGRETOL [Concomitant]
     Indication: TRIGEMINAL NEURALGIA
  6. POTASSIUM CHLORIDE [Concomitant]
     Indication: DRUG USE FOR UNKNOWN INDICATION
     Route: 048
  7. IBUPROFEN TABLETS [Concomitant]
     Indication: ARTHRALGIA
  8. IBUPROFEN TABLETS [Concomitant]
     Indication: HEADACHE
  9. ALBUTEROL [Concomitant]
     Indication: ASTHMA
     Route: 055
  10. SPIRIVA [Concomitant]
     Indication: ASTHMA
  11. ASPIRIN [Concomitant]
     Indication: DRUG USE FOR UNKNOWN INDICATION
  12. PREMARIN [Concomitant]
     Indication: DRUG USE FOR UNKNOWN INDICATION
  13. AMZACORT [Concomitant]
     Indication: DRUG USE FOR UNKNOWN INDICATION
  14. PREDNISONE TAB [Concomitant]
     Indication: TEMPORAL ARTERITIS
  15. VERSED [Concomitant]
     Indication: DRUG USE FOR UNKNOWN INDICATION
     Route: 042
  16. FENTANYL [Concomitant]
     Indication: DRUG USE FOR UNKNOWN INDICATION
     Route: 042
  17. FLOVENT [Concomitant]
     Indication: DRUG USE FOR UNKNOWN INDICATION

REACTIONS (25)
  - ARTHRALGIA [None]
  - BACK PAIN [None]
  - CHEST PAIN [None]
  - CHILLS [None]
  - COLON CANCER STAGE II [None]
  - CONTUSION [None]
  - COUGH [None]
  - DIVERTICULUM [None]
  - DIZZINESS [None]
  - DRY SKIN [None]
  - DYSPNOEA [None]
  - HEADACHE [None]
  - HYPERHIDROSIS [None]
  - HYPOAESTHESIA [None]
  - INJECTION SITE PAIN [None]
  - JOINT STIFFNESS [None]
  - JOINT SWELLING [None]
  - LIBIDO DECREASED [None]
  - MUSCLE SPASMS [None]
  - MYALGIA [None]
  - PARAESTHESIA [None]
  - PRURITUS [None]
  - PYREXIA [None]
  - TEMPORAL ARTERITIS [None]
  - WEIGHT INCREASED [None]
